FAERS Safety Report 5373735-4 (Version None)
Quarter: 2007Q2

REPORT INFORMATION
  Report Type: 
  Country: None (occurrence: None)
  Receive Date: 20070628
  Receipt Date: 20070621
  Transmission Date: 20071010
  Serious: Yes (Hospitalization)
  Sender: FDA-Public Use
  Company Number: FR-SHR-FR-2007-023277

PATIENT
  Age: 28 Year
  Sex: Female
  Weight: 43 kg

DRUGS (4)
  1. JASMINE (21) [Suspect]
     Indication: ORAL CONTRACEPTION
     Route: 048
     Dates: start: 20070406, end: 20070518
  2. ZOLOFT [Concomitant]
     Route: 048
     Dates: start: 20070410
  3. STRESAM [Concomitant]
     Route: 048
     Dates: start: 20070410
  4. NOCTRAN 10 [Concomitant]
     Route: 048
     Dates: start: 20070410

REACTIONS (2)
  - ERYTHEMA NODOSUM [None]
  - POLYARTHRITIS [None]
